FAERS Safety Report 7089777-7 (Version None)
Quarter: 2010Q4

REPORT INFORMATION
  Report Type: 
  Country: None (occurrence: None)
  Receive Date: 20101108
  Receipt Date: 20101103
  Transmission Date: 20110411
  Serious: Yes (Hospitalization, Other)
  Sender: FDA-Public Use
  Company Number: DE-PFIZER INC-2010140442

PATIENT
  Age: 71 Year
  Sex: Male
  Weight: 80 kg

DRUGS (3)
  1. CELECOXIB [Suspect]
     Indication: PROSTATE CANCER
     Dosage: 200 MG, 2X/DAY
     Dates: start: 20081001
  2. DEXAMETHASONE [Suspect]
     Indication: PROSTATE CANCER
     Dosage: 1.5 MG, 1X/DAY
     Route: 048
     Dates: start: 20081001
  3. REVLIMID [Suspect]
     Indication: PROSTATE CANCER
     Dosage: 25 MG, 1X/DAY
     Route: 048
     Dates: start: 20090914

REACTIONS (9)
  - ARTHRALGIA [None]
  - CUSHING'S SYNDROME [None]
  - DEHYDRATION [None]
  - DYSGEUSIA [None]
  - FATIGUE [None]
  - FURUNCLE [None]
  - NEUROPATHY PERIPHERAL [None]
  - PAIN [None]
  - SYNCOPE [None]
